FAERS Safety Report 8960797 (Version 26)
Quarter: 2019Q2

REPORT INFORMATION
  Report Type: Report from Study
  Country: CA (occurrence: CA)
  Receive Date: 20121213
  Receipt Date: 20190401
  Transmission Date: 20190711
  Serious: Yes (Hospitalization, Other)
  Sender: FDA-Public Use
  Company Number: PHHY2012CA114557

PATIENT
  Age: 74 Year
  Sex: Male

DRUGS (10)
  1. COUMADIN [Suspect]
     Active Substance: WARFARIN SODIUM
     Indication: ATRIAL FIBRILLATION
     Dosage: UNK
     Route: 065
     Dates: start: 20130514
  2. XARELTO [Concomitant]
     Active Substance: RIVAROXABAN
     Indication: BLOOD PRESSURE ABNORMAL
     Route: 065
  3. TASIGNA [Suspect]
     Active Substance: NILOTINIB
     Dosage: 30 MIN BEFORE THE 12 HOURS
     Route: 048
  4. PANTOLOC [Concomitant]
     Active Substance: PANTOPRAZOLE SODIUM
     Indication: PRODUCT USED FOR UNKNOWN INDICATION
     Route: 065
  5. LOPRESSOR [Suspect]
     Active Substance: METOPROLOL TARTRATE
     Indication: ATRIAL FIBRILLATION
     Dosage: 50 MG IN MORNING, 25 MG AT NIGHT, DAILY
     Route: 048
  6. CRESTOR [Concomitant]
     Active Substance: ROSUVASTATIN CALCIUM
     Indication: PRODUCT USED FOR UNKNOWN INDICATION
     Route: 065
  7. PLAVIX [Concomitant]
     Active Substance: CLOPIDOGREL BISULFATE
     Indication: PRODUCT USED FOR UNKNOWN INDICATION
     Route: 065
  8. ASA [Concomitant]
     Active Substance: ASPIRIN
     Indication: PRODUCT USED FOR UNKNOWN INDICATION
     Dosage: 81 MG, QD
     Route: 065
  9. TASIGNA [Suspect]
     Active Substance: NILOTINIB
     Dosage: 300 MG, BID
     Route: 048
     Dates: start: 20150428
  10. TASIGNA [Suspect]
     Active Substance: NILOTINIB
     Indication: CHRONIC MYELOID LEUKAEMIA
     Dosage: 300 MG, BID
     Route: 048
     Dates: start: 20120507, end: 20150421

REACTIONS (34)
  - Cataract [Unknown]
  - International normalised ratio increased [Unknown]
  - Torticollis [Unknown]
  - Hyperhidrosis [Unknown]
  - Lacrimation increased [Not Recovered/Not Resolved]
  - Erythema [Unknown]
  - Glucose tolerance impaired [Unknown]
  - Poor quality sleep [Unknown]
  - Hypotension [Unknown]
  - Heart rate increased [Unknown]
  - Weight decreased [Unknown]
  - Headache [Unknown]
  - Abdominal pain upper [Recovered/Resolved]
  - Bone pain [Unknown]
  - Cerebrovascular accident [Unknown]
  - Diarrhoea [Recovered/Resolved]
  - Myalgia [Unknown]
  - Arthralgia [Unknown]
  - Coronary artery occlusion [Unknown]
  - Eye pruritus [Unknown]
  - Ocular hyperaemia [Unknown]
  - Cough [Recovering/Resolving]
  - Fatigue [Recovering/Resolving]
  - Back pain [Unknown]
  - Musculoskeletal pain [Unknown]
  - Pneumonia [Unknown]
  - Dyspepsia [Recovering/Resolving]
  - Acne [Unknown]
  - Nasopharyngitis [Recovering/Resolving]
  - Musculoskeletal stiffness [Unknown]
  - Pruritus [Not Recovered/Not Resolved]
  - Body temperature increased [Recovered/Resolved]
  - Asthenia [Unknown]
  - Malaise [Unknown]

NARRATIVE: CASE EVENT DATE: 201212
